FAERS Safety Report 18442639 (Version 2)
Quarter: 2020Q4

REPORT INFORMATION
  Report Type: Spontaneous
  Country: JP (occurrence: JP)
  Receive Date: 20201029
  Receipt Date: 20201113
  Transmission Date: 20210114
  Serious: Yes (Hospitalization, Other)
  Sender: FDA-Public Use
  Company Number: JP-009507513-2010JPN010856

PATIENT
  Age: 69 Year
  Sex: Male

DRUGS (4)
  1. ACARBOSE. [Suspect]
     Active Substance: ACARBOSE
     Indication: TYPE 2 DIABETES MELLITUS
     Dosage: 100 MG
     Route: 048
  2. FORXIGA [Suspect]
     Active Substance: DAPAGLIFLOZIN
     Indication: TYPE 2 DIABETES MELLITUS
     Dosage: 5 MG
     Route: 048
  3. JANUVIA [Suspect]
     Active Substance: SITAGLIPTIN PHOSPHATE
     Dosage: 50 MG
     Route: 048
  4. RAMELTEON [Suspect]
     Active Substance: RAMELTEON
     Indication: INSOMNIA
     Dosage: 8 MG
     Route: 048

REACTIONS (11)
  - Autoimmune disorder [Unknown]
  - Myositis [Unknown]
  - Blood creatine phosphokinase increased [Recovering/Resolving]
  - Monoplegia [Unknown]
  - Lymphoma [Recovering/Resolving]
  - Bladder disorder [Unknown]
  - Urinary retention [Unknown]
  - Spinal cord infarction [Unknown]
  - Rhabdomyolysis [Recovering/Resolving]
  - Pain [Unknown]
  - Anorectal disorder [Unknown]

NARRATIVE: CASE EVENT DATE: 202010
